FAERS Safety Report 6827828-2 (Version None)
Quarter: 2010Q3

REPORT INFORMATION
  Report Type: 
  Country: None (occurrence: None)
  Receive Date: 20100709
  Receipt Date: 20070409
  Transmission Date: 20110219
  Serious: No
  Sender: FDA-Public Use
  Company Number: US-PFIZER INC-2007008008

PATIENT
  Sex: Female

DRUGS (2)
  1. VARENICLINE [Suspect]
  2. DRUG, UNSPECIFIED [Interacting]

REACTIONS (12)
  - ADVERSE DRUG REACTION [None]
  - ADVERSE EVENT [None]
  - DRUG INTERACTION [None]
  - FLATULENCE [None]
  - HEADACHE [None]
  - INFLUENZA LIKE ILLNESS [None]
  - INSOMNIA [None]
  - MYALGIA [None]
  - NAUSEA [None]
  - NEURALGIA [None]
  - PAIN [None]
  - VISUAL IMPAIRMENT [None]
